FAERS Safety Report 7906159-3 (Version None)
Quarter: 2011Q4

REPORT INFORMATION
  Report Type: 
  Country: None (occurrence: None)
  Receive Date: 20111109
  Receipt Date: 20111109
  Transmission Date: 20120403
  Serious: No
  Sender: FDA-Public Use
  Company Number: None

PATIENT
  Age: 74 Year
  Sex: Male
  Weight: 83.9154 kg

DRUGS (2)
  1. VANCOMYCIN [Suspect]
     Indication: INFECTION
     Dosage: 2 GM DAILY PIC
     Dates: start: 20110801, end: 20110901
  2. ROCEPHIN [Suspect]
     Indication: INFECTION
     Dosage: 2 GM DAILY PIC
     Dates: start: 20110801, end: 20110901

REACTIONS (4)
  - WEIGHT DECREASED [None]
  - RED BLOOD CELL COUNT ABNORMAL [None]
  - WHITE BLOOD CELL COUNT ABNORMAL [None]
  - DERMATITIS [None]
